FAERS Safety Report 11051098 (Version 1)
Quarter: 2015Q2

REPORT INFORMATION
  Report Type: Spontaneous
  Country: US (occurrence: US)
  Receive Date: 20150421
  Receipt Date: 20150421
  Transmission Date: 20150821
  Serious: Yes (Other)
  Sender: FDA-Public Use
  Company Number: US-SA-2015SA049759

PATIENT
  Age: 64 Year
  Sex: Male

DRUGS (10)
  1. MULTAQ [Suspect]
     Active Substance: DRONEDARONE
     Indication: ATRIAL FIBRILLATION
     Route: 065
     Dates: start: 201409
  2. AMIODARONE [Concomitant]
     Active Substance: AMIODARONE
     Dosage: 1-2 TABLETS UD
     Dates: start: 201405, end: 201409
  3. VITAMIN B6 [Concomitant]
     Active Substance: PYRIDOXINE HYDROCHLORIDE
     Route: 048
  4. VITAMIN B12 [Concomitant]
     Active Substance: CYANOCOBALAMIN
     Route: 048
  5. FLUOCINOLONE ACETONIDE. [Concomitant]
     Active Substance: FLUOCINOLONE ACETONIDE
     Dosage: 0.025 %
     Route: 061
  6. ATORVASTATIN [Concomitant]
     Active Substance: ATORVASTATIN
     Route: 048
  7. VITAMIN D [Concomitant]
     Active Substance: CHOLECALCIFEROL
     Route: 048
  8. MAGNESIUM OXIDE. [Concomitant]
     Active Substance: MAGNESIUM OXIDE
     Route: 048
     Dates: start: 201404
  9. WARFARIN [Concomitant]
     Active Substance: WARFARIN
     Dosage: FREQUENCY: UD
     Route: 048
  10. CLARINEX [Concomitant]
     Active Substance: DESLORATADINE
     Route: 048

REACTIONS (1)
  - Corneal pigmentation [Not Recovered/Not Resolved]
